FAERS Safety Report 20575593 (Version 1)
Quarter: 2022Q1

REPORT INFORMATION
  Report Type: Spontaneous
  Country: US (occurrence: US)
  Receive Date: 20220310
  Receipt Date: 20220310
  Transmission Date: 20220423
  Serious: No
  Sender: FDA-Public Use
  Company Number: US-BoehringerIngelheim-2022-BI-158533

PATIENT
  Age: 71 Year
  Sex: Male

DRUGS (4)
  1. SPIRIVA HANDIHALER [Suspect]
     Active Substance: TIOTROPIUM BROMIDE MONOHYDRATE
     Indication: Chronic obstructive pulmonary disease
     Dosage: 2 PUFFS FROM 1 CAPSULE DAILY IN THE MORNING
     Dates: end: 20220308
  2. ALBUTEROL [Concomitant]
     Active Substance: ALBUTEROL
     Indication: Drug therapy
  3. ALBUTEROL [Concomitant]
     Active Substance: ALBUTEROL
     Indication: Product used for unknown indication
  4. RANEXA [Concomitant]
     Active Substance: RANOLAZINE
     Indication: Cardiac disorder

REACTIONS (3)
  - Dyspnoea exertional [Not Recovered/Not Resolved]
  - Dry throat [Not Recovered/Not Resolved]
  - Candida infection [Recovered/Resolved]

NARRATIVE: CASE EVENT DATE: 20220308
